FAERS Safety Report 5772658-6 (Version None)
Quarter: 2008Q2

REPORT INFORMATION
  Report Type: 
  Country: None (occurrence: None)
  Receive Date: 20080613
  Receipt Date: 20080522
  Transmission Date: 20081010
  Serious: No
  Sender: FDA-Public Use
  Company Number: US-BOEHRINGER INGELHEIM GMBH, GERMANY-2008-BP-07345BP

PATIENT
  Age: 69 Year
  Sex: Female

DRUGS (10)
  1. CATAPRES-TTS-1 [Suspect]
     Indication: HYPERTENSION
     Route: 061
     Dates: start: 20080508, end: 20080509
  2. CATAPRES-TTS-1 [Suspect]
     Indication: BLOOD PRESSURE
  3. FORADIL [Concomitant]
     Indication: HYPERTENSION
  4. BENAZEPRIL HYDROCHLORIDE [Concomitant]
     Indication: HYPERTENSION
  5. LOVASTIN [Concomitant]
     Indication: BLOOD CHOLESTEROL
  6. PHOSLO [Concomitant]
  7. GLYBURIDE [Concomitant]
     Indication: DIABETES MELLITUS
  8. HECTOROL [Concomitant]
     Indication: MINERAL SUPPLEMENTATION
  9. TOPROL-XL [Concomitant]
  10. CLONIDINE [Concomitant]

REACTIONS (2)
  - DIZZINESS [None]
  - VOMITING [None]
